FAERS Safety Report 19661965 (Version 1)
Quarter: 2021Q3

REPORT INFORMATION
  Report Type: Spontaneous
  Country: US (occurrence: US)
  Receive Date: 20210805
  Receipt Date: 20210805
  Transmission Date: 20211014
  Serious: Yes (Other)
  Sender: FDA-Public Use
  Company Number: US-ACCORD-211795

PATIENT
  Age: 65 Year
  Sex: Female
  Weight: 92.53 kg

DRUGS (12)
  1. PROLIA [Concomitant]
     Active Substance: DENOSUMAB
  2. VALSARTAN. [Concomitant]
     Active Substance: VALSARTAN
  3. METOPROLOL. [Concomitant]
     Active Substance: METOPROLOL
  4. PARAPLATIN [Suspect]
     Active Substance: CARBOPLATIN
     Indication: BREAST CANCER
     Dates: start: 20150914, end: 20151228
  5. LETROZOLE. [Concomitant]
     Active Substance: LETROZOLE
  6. DOCETAXEL. [Suspect]
     Active Substance: DOCETAXEL
     Indication: BREAST CANCER
     Dates: start: 20150914, end: 20151228
  7. PERJETA [Suspect]
     Active Substance: PERTUZUMAB
     Indication: BREAST CANCER
     Dates: start: 20150914, end: 20151228
  8. GLIPIZIDE. [Concomitant]
     Active Substance: GLIPIZIDE
  9. METFORMIN [Concomitant]
     Active Substance: METFORMIN HYDROCHLORIDE
  10. AMLODIPINE [Concomitant]
     Active Substance: AMLODIPINE BESYLATE
  11. HERCEPTIN [Suspect]
     Active Substance: TRASTUZUMAB
     Indication: BREAST CANCER
     Dates: start: 20150914, end: 20151228
  12. ATORVASTATIN [Concomitant]
     Active Substance: ATORVASTATIN

REACTIONS (1)
  - Alopecia [Not Recovered/Not Resolved]
